FAERS Safety Report 24533140 (Version 1)
Quarter: 2024Q4

REPORT INFORMATION
  Report Type: Spontaneous
  Country: US (occurrence: US)
  Receive Date: 20241022
  Receipt Date: 20241022
  Transmission Date: 20250115
  Serious: Yes (Other)
  Sender: DAITO PHARMACEUTICALS
  Company Number: US-Daito Pharmaceutical Co., Ltd.-2163500

PATIENT
  Age: 84 Year
  Sex: Female

DRUGS (5)
  1. METHOTREXATE SODIUM [Suspect]
     Active Substance: METHOTREXATE SODIUM
     Indication: Psoriatic arthropathy
  2. ADALIMUMAB [Suspect]
     Active Substance: ADALIMUMAB
  3. GUSELKUMAB [Suspect]
     Active Substance: GUSELKUMAB
  4. USTEKINUMAB [Suspect]
     Active Substance: USTEKINUMAB
  5. ETANERCEPT [Suspect]
     Active Substance: ETANERCEPT

REACTIONS (2)
  - Pulmonary alveolar haemorrhage [Unknown]
  - Treatment failure [Unknown]
